FAERS Safety Report 18629209 (Version 2)
Quarter: 2021Q1

REPORT INFORMATION
  Report Type: Spontaneous
  Country: US (occurrence: US)
  Receive Date: 20201217
  Receipt Date: 20210304
  Transmission Date: 20210419
  Serious: No
  Sender: FDA-Public Use
  Company Number: US-ESPERIONTHERAPEUTICS-2020USA04907

PATIENT
  Age: 73 Year
  Sex: Male
  Weight: 73.02 kg

DRUGS (5)
  1. LISINOPRIL. [Concomitant]
     Active Substance: LISINOPRIL
     Dosage: 5 MILLIGRAM, QD
     Route: 048
  2. ASPIRIN [ACETYLSALICYLIC ACID] [Concomitant]
     Active Substance: ASPIRIN
     Dosage: 81 MILLIGRAM, QD
     Route: 048
  3. NEXLIZET [Suspect]
     Active Substance: BEMPEDOIC ACID\EZETIMIBE
     Indication: BLOOD CHOLESTEROL INCREASED
     Dosage: 180/10 MILLIGRAM, QD
     Route: 048
     Dates: start: 20201106
  4. PLAVIX [Concomitant]
     Active Substance: CLOPIDOGREL BISULFATE
     Dosage: 75 MILLIGRAM, QD
     Route: 048
  5. TOPROL XL [Concomitant]
     Active Substance: METOPROLOL SUCCINATE
     Dosage: 12.5 MILLIGRAM, QD
     Route: 048

REACTIONS (7)
  - Paraesthesia [Not Recovered/Not Resolved]
  - Spontaneous penile erection [Recovered/Resolved]
  - Anion gap abnormal [Unknown]
  - Nocturia [Not Recovered/Not Resolved]
  - Burning sensation [Not Recovered/Not Resolved]
  - Product dose omission in error [Recovered/Resolved]
  - Prostatomegaly [Not Recovered/Not Resolved]

NARRATIVE: CASE EVENT DATE: 202011
